FAERS Safety Report 6040692-7 (Version None)
Quarter: 2009Q1

REPORT INFORMATION
  Report Type: 
  Country: None (occurrence: None)
  Receive Date: 20090116
  Receipt Date: 20080505
  Transmission Date: 20090719
  Serious: No
  Sender: FDA-Public Use
  Company Number: US-BRISTOL-MYERS SQUIBB COMPANY-14179402

PATIENT
  Age: 25 Year
  Sex: Female

DRUGS (5)
  1. ABILIFY [Suspect]
     Dates: start: 20080401, end: 20080423
  2. LAMICTAL [Concomitant]
  3. WELLBUTRIN [Concomitant]
  4. LUNESTA [Concomitant]
  5. CONTRACEPTIVE [Concomitant]
     Indication: CONTRACEPTION
     Route: 048

REACTIONS (1)
  - VISION BLURRED [None]
